FAERS Safety Report 4428773-2 (Version None)
Quarter: 2004Q3

REPORT INFORMATION
  Report Type: 
  Country: None (occurrence: None)
  Receive Date: 20040818
  Receipt Date: 20040525
  Transmission Date: 20050211
  Serious: No
  Sender: FDA-Public Use
  Company Number: US-BRISTOL-MYERS SQUIBB COMPANY-12595948

PATIENT
  Age: 66 Year
  Sex: Female
  Weight: 54 kg

DRUGS (8)
  1. TEQUIN [Suspect]
     Indication: PNEUMONIA
     Route: 048
     Dates: start: 20040302
  2. TRICOR [Concomitant]
  3. ZETIA [Concomitant]
  4. ASPIRIN [Concomitant]
     Dosage: 81 GRAINS
  5. VITAMIN E [Concomitant]
  6. VITAMIN C [Concomitant]
  7. CENTRUM [Concomitant]
  8. FOSAMAX [Concomitant]

REACTIONS (1)
  - AMNESIA [None]
